FAERS Safety Report 9500094 (Version 3)
Quarter: 2013Q4

REPORT INFORMATION
  Report Type: Spontaneous
  Country: DE (occurrence: DE)
  Receive Date: 20130905
  Receipt Date: 20131202
  Transmission Date: 20140711
  Serious: Yes (Hospitalization)
  Sender: FDA-Public Use
  Company Number: PHHY2013DE052640

PATIENT
  Sex: Male

DRUGS (10)
  1. TASIGNA [Suspect]
     Indication: CHRONIC MYELOID LEUKAEMIA
     Dosage: 800 MG/DAY
     Route: 048
     Dates: start: 20050614, end: 20130211
  2. AMLODIPINE [Concomitant]
     Indication: HYPERTENSION
     Dosage: 5 MG/DAY
     Route: 048
     Dates: start: 200711
  3. RAMIPRIL [Concomitant]
     Indication: HYPERTENSION
     Dosage: 5 MG/DAY
     Route: 048
     Dates: start: 200703
  4. BISOPROLOL [Concomitant]
     Indication: HYPERTENSION
     Dosage: 2.5 MG/DAY
     Route: 048
     Dates: start: 201001
  5. HCT [Concomitant]
     Indication: HYPERTENSION
     Dosage: 25 MG
     Dates: start: 200708
  6. SIMVASTATIN [Concomitant]
     Indication: PROPHYLAXIS
     Dosage: 20 MG/DAY
     Route: 048
     Dates: start: 200708
  7. ASS [Concomitant]
     Indication: CARDIAC FAILURE CONGESTIVE
     Dosage: 100 MG/DAY
     Route: 048
     Dates: start: 200708
  8. NOVALGIN [Concomitant]
     Indication: PAIN
     Dosage: 1500 MG/DAY
     Route: 048
     Dates: start: 201302
  9. CLOPIDOGREL [Concomitant]
     Indication: THROMBOCYTOSIS
     Dosage: 75 MG/DAY
     Route: 048
     Dates: start: 201301, end: 20130302
  10. CLEXANE [Concomitant]
     Indication: THROMBOSIS PROPHYLAXIS
     Dosage: 0.4 ML, UNK
     Route: 058
     Dates: start: 201302

REACTIONS (9)
  - Mesenteric arterial occlusion [Unknown]
  - Coeliac artery stenosis [Unknown]
  - Ischaemia [Recovered/Resolved with Sequelae]
  - Peripheral arterial occlusive disease [Recovered/Resolved with Sequelae]
  - Gangrene [Recovered/Resolved with Sequelae]
  - Coronary artery disease [Not Recovered/Not Resolved]
  - Concomitant disease progression [Not Recovered/Not Resolved]
  - Mobility decreased [Unknown]
  - Dysarthria [Unknown]
